FAERS Safety Report 23599525 (Version 2)
Quarter: 2024Q1

REPORT INFORMATION
  Report Type: Spontaneous
  Country: CA (occurrence: CA)
  Receive Date: 20240306
  Receipt Date: 20240321
  Transmission Date: 20240410
  Serious: Yes (Life-Threatening, Hospitalization, Other)
  Sender: FDA-Public Use
  Company Number: CA-TAKEDA-2024TUS018384

PATIENT
  Sex: Male
  Weight: 66 kg

DRUGS (2)
  1. VYVANSE [Suspect]
     Active Substance: LISDEXAMFETAMINE DIMESYLATE
     Indication: Attention deficit hyperactivity disorder
     Dosage: 20 MILLIGRAM
     Route: 048
     Dates: start: 202309
  2. CIPRALEX [Concomitant]
     Active Substance: ESCITALOPRAM OXALATE
     Dosage: UNK

REACTIONS (11)
  - Suicide attempt [Unknown]
  - Suicidal ideation [Unknown]
  - Mood altered [Unknown]
  - Mental disorder [Unknown]
  - Apathy [Unknown]
  - Memory impairment [Unknown]
  - Somnolence [Unknown]
  - Depression [Unknown]
  - Feeling abnormal [Unknown]
  - Product physical issue [Unknown]
  - Product use issue [Unknown]
